FAERS Safety Report 8845551 (Version 5)
Quarter: 2016Q3

REPORT INFORMATION
  Report Type: Report from Study
  Country: CA (occurrence: CA)
  Receive Date: 20121017
  Receipt Date: 20160715
  Transmission Date: 20161109
  Serious: Yes (Death, Hospitalization, Other)
  Sender: FDA-Public Use
  Company Number: PHHY2012CA034870

PATIENT
  Sex: Female

DRUGS (3)
  1. DILAUDID [Concomitant]
     Active Substance: HYDROMORPHONE HYDROCHLORIDE
     Indication: PRODUCT USED FOR UNKNOWN INDICATION
     Dosage: UNK
     Route: 065
  2. SANDOSTATIN LAR DEPOT [Suspect]
     Active Substance: OCTREOTIDE ACETATE
     Indication: CARCINOID TUMOUR OF THE SMALL BOWEL
     Dosage: 40 MG, ONCE IN A MONTH
     Route: 030
     Dates: start: 20091230, end: 20160610
  3. HYDROMORPHONE [Concomitant]
     Active Substance: HYDROMORPHONE
     Indication: PRODUCT USED FOR UNKNOWN INDICATION
     Dosage: UNK
     Route: 065

REACTIONS (10)
  - Renal disorder [Unknown]
  - Pneumonia [Recovered/Resolved]
  - Injection site haemorrhage [Unknown]
  - Malignant neoplasm progression [Unknown]
  - Oncologic complication [Fatal]
  - Spinal disorder [Unknown]
  - Tachycardia [Recovered/Resolved]
  - Metastases to lung [Unknown]
  - Pulmonary oedema [Unknown]
  - Malaise [Unknown]
